FAERS Safety Report 6143531-9 (Version None)
Quarter: 2009Q2

REPORT INFORMATION
  Report Type: 
  Country: None (occurrence: None)
  Receive Date: 20090401
  Receipt Date: 20090319
  Transmission Date: 20091009
  Serious: Yes (Other)
  Sender: FDA-Public Use
  Company Number: FPI-09-TEV-0069

PATIENT
  Age: 4 Year
  Sex: Male
  Weight: 12 kg

DRUGS (1)
  1. TEV-TROPIN [Suspect]
     Indication: BODY HEIGHT BELOW NORMAL
     Dosage: 0.6 MG / DAILY / SQ
     Route: 058
     Dates: start: 20081209, end: 20090303

REACTIONS (3)
  - ADENOIDAL HYPERTROPHY [None]
  - SLEEP APNOEA SYNDROME [None]
  - TONSILLAR HYPERTROPHY [None]
